FAERS Safety Report 4733982-9 (Version None)
Quarter: 2005Q3

REPORT INFORMATION
  Report Type: 
  Country: None (occurrence: None)
  Receive Date: 20050721
  Receipt Date: 20050509
  Transmission Date: 20060218
  Serious: No
  Sender: FDA-Public Use
  Company Number: 2005SP000687

PATIENT
  Age: 69 Year
  Sex: Female
  Weight: 52.1637 kg

DRUGS (5)
  1. LUNESTA [Suspect]
     Indication: MIDDLE INSOMNIA
     Dosage: 3 MG;HS;ORAL
     Route: 048
     Dates: start: 20050420, end: 20050427
  2. FOSAMAX [Concomitant]
  3. LIPITOR [Concomitant]
  4. SYNTHROID [Concomitant]
  5. AMBIEN [Concomitant]

REACTIONS (2)
  - DRUG INEFFECTIVE [None]
  - MIDDLE INSOMNIA [None]
